FAERS Safety Report 5499134-2 (Version None)
Quarter: 2007Q4

REPORT INFORMATION
  Report Type: 
  Country: None (occurrence: None)
  Receive Date: 20071026
  Receipt Date: 20071019
  Transmission Date: 20080405
  Serious: Yes (Hospitalization)
  Sender: FDA-Public Use
  Company Number: US-AVENTIS-200719644GDDC

PATIENT
  Age: 73 Year
  Sex: Male
  Weight: 107 kg

DRUGS (3)
  1. TAXOTERE [Suspect]
     Indication: NON-SMALL CELL LUNG CANCER
     Route: 042
     Dates: start: 20070926, end: 20070926
  2. CISPLATIN [Suspect]
     Indication: NON-SMALL CELL LUNG CANCER
     Route: 042
     Dates: start: 20070926, end: 20070926
  3. GLEEVEC [Suspect]
     Indication: NON-SMALL CELL LUNG CANCER
     Dosage: DOSE: 400 MG QD FOR 7 DAYS  (FROM DAY -5 TO DAY +2)
     Route: 048

REACTIONS (4)
  - ASTHENIA [None]
  - HYPOCALCAEMIA [None]
  - HYPOMAGNESAEMIA [None]
  - UPPER RESPIRATORY TRACT INFECTION [None]
